FAERS Safety Report 5531557-5 (Version None)
Quarter: 2007Q4

REPORT INFORMATION
  Report Type: 
  Country: None (occurrence: None)
  Receive Date: 20071203
  Receipt Date: 20071120
  Transmission Date: 20080405
  Serious: Yes (Other)
  Sender: FDA-Public Use
  Company Number: PHFR2007GB03399

PATIENT
  Age: 14 Year
  Sex: Female

DRUGS (1)
  1. EXJADE [Suspect]
     Dosage: 625 MG
     Route: 065
     Dates: start: 20071029, end: 20071118

REACTIONS (8)
  - ABDOMINAL PAIN [None]
  - ALANINE AMINOTRANSFERASE INCREASED [None]
  - BLOOD AMYLASE INCREASED [None]
  - HEPATIC ENZYME INCREASED [None]
  - PANCREATITIS [None]
  - ULTRASOUND ABDOMEN ABNORMAL [None]
  - URTICARIA [None]
  - VOMITING [None]
